FAERS Safety Report 19358694 (Version 5)
Quarter: 2022Q3

REPORT INFORMATION
  Report Type: Spontaneous
  Country: JP (occurrence: JP)
  Receive Date: 20210602
  Receipt Date: 20220714
  Transmission Date: 20221026
  Serious: Yes (Hospitalization, Other)
  Sender: FDA-Public Use
  Company Number: JP-GSKNCCC-CASE-01222288_AE-44975

PATIENT

DRUGS (11)
  1. LAMICTAL [Suspect]
     Active Substance: LAMOTRIGINE
     Indication: Bipolar disorder
     Dosage: 25 MG, QD  MORNING
     Route: 048
     Dates: end: 20210516
  2. LAMOTRIGINE [Suspect]
     Active Substance: LAMOTRIGINE
     Indication: Bipolar disorder
     Dosage: 25 MG, QD MORNING
     Route: 048
     Dates: start: 20210517
  3. AMLODIPINE\HYDROCHLOROTHIAZIDE\TELMISARTAN [Suspect]
     Active Substance: AMLODIPINE\HYDROCHLOROTHIAZIDE\TELMISARTAN
     Dosage: 1 DF, QD AFTER BREAKFAST
     Route: 048
     Dates: end: 20210517
  4. RISPERDAL [Suspect]
     Active Substance: RISPERIDONE
     Dosage: 1 MG, QD BEFORE BEDTIME
     Route: 048
     Dates: end: 20210517
  5. VALPROATE SODIUM [Suspect]
     Active Substance: VALPROATE SODIUM
     Indication: Bipolar disorder
     Dosage: 200MG AT MORNING?600MG BEFORE BEDTIME, BID
     Route: 048
     Dates: end: 20210517
  6. MAGNESIUM OXIDE [Concomitant]
     Active Substance: MAGNESIUM OXIDE
     Dosage: 330 MG, QD AFTER BREAKFAST
     Route: 048
  7. ZOLPIDEM TARTRATE [Concomitant]
     Active Substance: ZOLPIDEM TARTRATE
     Indication: Insomnia
     Dosage: 10 MG BEFORE BEDTIME, PRN
     Route: 048
  8. MEILAX TABLETS [Concomitant]
     Indication: Anxiety
     Dosage: 1 MG BEFORE BEDTIME, PRN AT ANXIETY
     Route: 048
  9. LUNESTA TABLETS [Concomitant]
     Dosage: 2 MG, QD BEFORE BEDTIME
     Route: 048
  10. GOOFICE TABLET [Concomitant]
     Dosage: 10 MG, QD BEFORE DINNER
     Route: 048
  11. EQUMET COMBINATION TABLETS LD [Concomitant]
     Dosage: UNK UNK, BID

REACTIONS (5)
  - Asthenia [Recovering/Resolving]
  - Rhabdomyolysis [Recovered/Resolved]
  - Acute kidney injury [Recovered/Resolved]
  - Anuria [Recovering/Resolving]
  - Malaise [Recovered/Resolved]

NARRATIVE: CASE EVENT DATE: 20210516
